FAERS Safety Report 26185018 (Version 1)
Quarter: 2025Q4

REPORT INFORMATION
  Report Type: Spontaneous
  Country: US (occurrence: US)
  Receive Date: 20251222
  Receipt Date: 20251222
  Transmission Date: 20260117
  Serious: No
  Sender: Kenvue
  Company Number: US-KENVUE-20251204324

PATIENT
  Age: 49 Year
  Sex: Female

DRUGS (1)
  1. MENS ROGAINE EXTRA STRENGTH [Suspect]
     Active Substance: MINOXIDIL
     Indication: Alopecia
     Dosage: APPLIED LIBERALLY, ONCE A DAY, ONLY USED TWICE
     Route: 065
     Dates: start: 20250608, end: 202506

REACTIONS (3)
  - Skin exfoliation [Recovering/Resolving]
  - Product use issue [Unknown]
  - Intentional product misuse [Unknown]

NARRATIVE: CASE EVENT DATE: 20250608
